FAERS Safety Report 4348190-3 (Version None)
Quarter: 2004Q2

REPORT INFORMATION
  Report Type: 
  Country: None (occurrence: None)
  Receive Date: 20040422
  Receipt Date: 20040405
  Transmission Date: 20050107
  Serious: Yes (Other)
  Sender: FDA-Public Use
  Company Number: USA040464092

PATIENT
  Sex: Female

DRUGS (6)
  1. FORTEO [Suspect]
  2. . [Concomitant]
  3. . [Concomitant]
  4. . [Concomitant]
  5. . [Concomitant]
  6. . [Concomitant]

REACTIONS (2)
  - MEDICATION ERROR [None]
  - OVERDOSE [None]
